FAERS Safety Report 6643823-0 (Version None)
Quarter: 2010Q1

REPORT INFORMATION
  Report Type: 
  Country: None (occurrence: None)
  Receive Date: 20100316
  Receipt Date: 20100308
  Transmission Date: 20100710
  Serious: Yes (Hospitalization)
  Sender: FDA-Public Use
  Company Number: 2010SP006238

PATIENT
  Age: 71 Year
  Sex: Female
  Weight: 61 kg

DRUGS (9)
  1. PEG-INTRON [Suspect]
     Indication: HEPATITIS C
     Dosage: 50 MCG;QW;SC
     Route: 058
     Dates: start: 20080903
  2. RIBAVIRIN [Suspect]
     Indication: HEPATITIS C
     Dosage: 1000 MG;QD
     Dates: start: 20080903
  3. ALLOPURINOL [Suspect]
     Indication: HYPERURICAEMIA
     Dosage: 100 MG;QD
     Dates: start: 20090512
  4. ACETAMINOPHEN [Suspect]
     Indication: INFLUENZA
     Dosage: 1 GM;TID
     Dates: start: 20080903
  5. TEMESTA [Concomitant]
  6. LEVOTHYROX [Concomitant]
  7. ISOPTIN [Concomitant]
  8. MICARDIS HCT [Concomitant]
  9. VITAMIN B1 TAB [Concomitant]

REACTIONS (6)
  - CYTOLYTIC HEPATITIS [None]
  - HEPATITIS C ANTIBODY POSITIVE [None]
  - JAUNDICE CHOLESTATIC [None]
  - LIPASE INCREASED [None]
  - QRS AXIS ABNORMAL [None]
  - SPLENOMEGALY [None]
